FAERS Safety Report 7039834-6 (Version None)
Quarter: 2010Q4

REPORT INFORMATION
  Report Type: 
  Country: None (occurrence: None)
  Receive Date: 20101012
  Receipt Date: 20100929
  Transmission Date: 20110411
  Serious: Yes (Hospitalization)
  Sender: FDA-Public Use
  Company Number: AT-ELI_LILLY_AND_COMPANY-AT201010000489

PATIENT
  Age: 20 Year
  Sex: Female

DRUGS (6)
  1. ZYPREXA [Suspect]
     Dosage: 20 MG, UNK
     Route: 065
     Dates: start: 20060101
  2. LEVOMEPROMAZINE [Concomitant]
     Dosage: 400 MG, UNKNOWN
     Route: 065
     Dates: start: 20080101
  3. ESCITALOPRAM [Concomitant]
     Dosage: 10 MG, UNKNOWN
     Route: 065
     Dates: start: 20070101
  4. ZUCLOPENTHIXOL [Concomitant]
     Dosage: 30 MG, UNKNOWN
     Route: 065
     Dates: start: 20090301
  5. DIAZEPAM [Concomitant]
     Dosage: 15 MG, UNKNOWN
     Route: 065
     Dates: start: 20080101
  6. BIPERIDEN HYDROCHLORIDE TAB [Concomitant]
     Dosage: 4 MG, UNKNOWN
     Route: 065
     Dates: start: 20080101

REACTIONS (2)
  - HOSPITALISATION [None]
  - OCULOGYRIC CRISIS [None]
